FAERS Safety Report 21130218 (Version 2)
Quarter: 2022Q3

REPORT INFORMATION
  Report Type: Report from Study
  Country: CN (occurrence: None)
  Receive Date: 20220726
  Receipt Date: 20220815
  Transmission Date: 20221027
  Serious: Yes (Hospitalization)
  Sender: FDA-Public Use
  Company Number: CN-ROCHE-2915678

PATIENT
  Age: 56 Year
  Sex: Male
  Weight: 80 kg

DRUGS (39)
  1. TIRAGOLUMAB [Suspect]
     Active Substance: TIRAGOLUMAB
     Indication: Oesophageal squamous cell carcinoma metastatic
     Dosage: ON 23/AUG/2021 HE RECEIVED MOST RECENT DOSE OF TIRAGOLUMAB
     Route: 042
     Dates: start: 20210426
  2. ATEZOLIZUMAB [Suspect]
     Active Substance: ATEZOLIZUMAB
     Indication: Oesophageal squamous cell carcinoma metastatic
     Dosage: ON 23/AUG/2021 HE RECEIVED MOST RECENT DOSE OF ATEZOLIZUMAB
     Route: 041
     Dates: start: 20210426
  3. PACLITAXEL [Suspect]
     Active Substance: PACLITAXEL
     Indication: Oesophageal squamous cell carcinoma metastatic
     Dosage: ON 30/JUL/2021 HE RECEIVED MOST RECENT DOSE OF PACLITAXEL 279 MG
     Route: 042
     Dates: start: 20210426
  4. CISPLATIN [Suspect]
     Active Substance: CISPLATIN
     Indication: Oesophageal squamous cell carcinoma metastatic
     Dosage: ON 30/JUL/2021 HE RECEIVED MOST RECENT DOSE OF CISPLATIN 94 MG
     Route: 042
     Dates: start: 20210426
  5. GLYCOSAMINOGLYCANS [Concomitant]
     Active Substance: GLYCOSAMINOGLYCANS
     Indication: Venous thrombosis
     Dates: start: 20210428
  6. TRIMETAZIDINE DIHYDROCHLORIDE [Concomitant]
     Active Substance: TRIMETAZIDINE DIHYDROCHLORIDE
     Dosage: PROTECT THE HEART
     Dates: start: 20210709, end: 20210905
  7. TRIMETAZIDINE DIHYDROCHLORIDE [Concomitant]
     Active Substance: TRIMETAZIDINE DIHYDROCHLORIDE
     Dates: start: 20210924, end: 20210924
  8. DICLOFENAC SODIUM [Concomitant]
     Active Substance: DICLOFENAC SODIUM
     Indication: Gout
     Dosage: 1 GRAIN
     Route: 048
     Dates: start: 20210722
  9. METOPROLOL [Concomitant]
     Active Substance: METOPROLOL
     Dates: start: 20210709
  10. CELECOXIB [Concomitant]
     Active Substance: CELECOXIB
     Indication: Gout
     Dosage: 1 GRAIN
     Route: 048
     Dates: start: 20210805
  11. CELECOXIB [Concomitant]
     Active Substance: CELECOXIB
     Dates: start: 20210823, end: 20210823
  12. DEXTROSE [Concomitant]
     Active Substance: DEXTROSE
     Indication: Renal injury
     Dates: start: 20210819, end: 20210823
  13. DEXTROSE [Concomitant]
     Active Substance: DEXTROSE
     Indication: Prophylaxis
     Dates: start: 20210916, end: 20210924
  14. DEXTROSE [Concomitant]
     Active Substance: DEXTROSE
     Dates: start: 20210916, end: 20210916
  15. DEXTROSE [Concomitant]
     Active Substance: DEXTROSE
     Dates: start: 20210918, end: 20210918
  16. SODIUM BICARBONATE [Concomitant]
     Active Substance: SODIUM BICARBONATE
     Indication: Renal injury
     Dates: start: 20210819, end: 20210823
  17. SODIUM BICARBONATE [Concomitant]
     Active Substance: SODIUM BICARBONATE
     Indication: Prophylaxis
  18. TORSEMIDE [Concomitant]
     Active Substance: TORSEMIDE
     Indication: Polyuria
     Dates: start: 20210819, end: 20210823
  19. BEPOTASTINE BESYLATE [Concomitant]
     Active Substance: BEPOTASTINE BESYLATE
     Indication: Rash
     Dates: start: 20210820, end: 20210824
  20. DESLORATADINE [Concomitant]
     Active Substance: DESLORATADINE
     Indication: Rash
     Dates: start: 20210820, end: 20210824
  21. MOMETASONE FUROATE [Concomitant]
     Active Substance: MOMETASONE FUROATE
     Indication: Rash
     Route: 062
     Dates: start: 20210819, end: 20210824
  22. CELECOXIB [Concomitant]
     Active Substance: CELECOXIB
     Indication: Gout
     Dates: start: 20210823, end: 20210823
  23. CELECOXIB [Concomitant]
     Active Substance: CELECOXIB
     Dates: start: 20210805
  24. METOPROLOL TARTRATE [Concomitant]
     Active Substance: METOPROLOL TARTRATE
     Indication: Hypotension
     Dates: start: 20210709
  25. DEXTROSE AND SODIUM CHLORIDE [Concomitant]
     Active Substance: DEXTROSE MONOHYDRATE\SODIUM CHLORIDE
     Dates: start: 20210918, end: 20210925
  26. SODIUM CHLORIDE [Concomitant]
     Active Substance: SODIUM CHLORIDE
     Indication: Renal injury
     Dates: start: 20210819, end: 20210823
  27. SODIUM CHLORIDE [Concomitant]
     Active Substance: SODIUM CHLORIDE
     Indication: Prophylaxis
     Route: 042
     Dates: start: 20210916, end: 20210917
  28. SODIUM CHLORIDE [Concomitant]
     Active Substance: SODIUM CHLORIDE
     Indication: Blood sodium
     Dates: start: 20210918, end: 20210918
  29. SODIUM CHLORIDE [Concomitant]
     Active Substance: SODIUM CHLORIDE
     Dates: start: 20210921, end: 20210921
  30. ENTRESTO [Concomitant]
     Active Substance: SACUBITRIL\VALSARTAN
     Indication: Hypotension
     Dates: start: 20210709
  31. DESMOPRESSIN ACETATE [Concomitant]
     Active Substance: DESMOPRESSIN ACETATE
     Indication: Oliguria
     Dates: start: 20210921, end: 20210923
  32. DESMOPRESSIN ACETATE [Concomitant]
     Active Substance: DESMOPRESSIN ACETATE
     Dates: start: 20211012
  33. HYDROCORTISONE ACETATE [Concomitant]
     Active Substance: HYDROCORTISONE ACETATE
     Indication: Hormone replacement therapy
     Route: 048
     Dates: start: 20210922, end: 20210922
  34. SALT [Concomitant]
     Active Substance: SODIUM CHLORIDE
     Indication: Blood sodium
     Dosage: DOSE: 2 CAPSULE
     Route: 048
     Dates: start: 20210924, end: 20210925
  35. BISMUTH SUBCITRATE [Concomitant]
     Active Substance: BISMUTH SUBCITRATE
     Indication: Mineral supplementation
     Dates: start: 20210924, end: 20210925
  36. DIAZEPAM [Concomitant]
     Active Substance: DIAZEPAM
     Route: 065
     Dates: start: 20210916, end: 20210916
  37. EUTHYROX [Concomitant]
     Active Substance: LEVOTHYROXINE SODIUM
     Indication: Hypothyroidism
     Dates: start: 20211106
  38. SACUBITRIL\VALSARTAN [Concomitant]
     Active Substance: SACUBITRIL\VALSARTAN
     Indication: Hypotension
     Dates: start: 20210921, end: 20210924
  39. MINIRIN [Concomitant]
     Active Substance: DESMOPRESSIN ACETATE
     Dates: start: 20211012

REACTIONS (1)
  - Hypopituitarism [Not Recovered/Not Resolved]

NARRATIVE: CASE EVENT DATE: 20210917
